FAERS Safety Report 7705951-8 (Version None)
Quarter: 2011Q3

REPORT INFORMATION
  Report Type: 
  Country: None (occurrence: None)
  Receive Date: 20110824
  Receipt Date: 20110815
  Transmission Date: 20111222
  Serious: Yes (Hospitalization, Other)
  Sender: FDA-Public Use
  Company Number: PHFR2011GB04236

PATIENT
  Sex: Female

DRUGS (15)
  1. OMEPRAZOLE [Concomitant]
     Indication: GASTROOESOPHAGEAL REFLUX DISEASE
     Dosage: 40 MG, QD
     Route: 048
  2. CALCIFEROL [Concomitant]
     Route: 048
  3. DIAZEPAM [Concomitant]
     Indication: ANXIETY
     Dosage: 25 MG, QD
     Route: 048
  4. ZOPICLONE [Concomitant]
     Indication: INSOMNIA
     Dosage: 7.5 MG, UNK
     Route: 048
  5. MONTELUKAST SODIUM [Concomitant]
     Indication: ASTHMA
     Dosage: 10 MG, QD
  6. UNIPHYL [Concomitant]
     Indication: ASTHMA
     Dosage: 400 MG, QD
     Route: 048
  7. CLOZAPINE [Suspect]
     Indication: PSYCHOTIC DISORDER
     Dosage: 150 MG, UNK
     Route: 048
     Dates: start: 20110705
  8. SERETIDE [Concomitant]
     Indication: ASTHMA
  9. ACETAMINOPHEN [Concomitant]
     Dosage: 1 G, QID
     Dates: start: 20110715
  10. DOCUSATE SODIUM [Concomitant]
     Dosage: 200 MG, BID
     Route: 048
     Dates: start: 20110715
  11. CETIRIZINE HCL [Concomitant]
     Indication: SEASONAL ALLERGY
     Dosage: 10 MG, QD
     Route: 048
  12. LEVOTHYROXINE SODIUM [Concomitant]
     Indication: HYPOTHYROIDISM
     Dosage: 100 UG, QD
     Route: 048
  13. MOVIPREP [Concomitant]
     Indication: CONSTIPATION
     Route: 048
  14. SIMAVASTATIN [Concomitant]
     Indication: BLOOD CHOLESTEROL INCREASED
     Dosage: 20 MG, NOCTE
     Route: 048
  15. SENNA [Concomitant]
     Dosage: 7.5 MG, QD
     Route: 048
     Dates: start: 20110715

REACTIONS (7)
  - ABDOMINAL PAIN UPPER [None]
  - BLOOD AMYLASE INCREASED [None]
  - TACHYCARDIA [None]
  - DIVERTICULITIS [None]
  - NAUSEA [None]
  - CONSTIPATION [None]
  - CHOLELITHIASIS [None]
